FAERS Safety Report 6894374-X (Version None)
Quarter: 2010Q3

REPORT INFORMATION
  Report Type: 
  Country: None (occurrence: None)
  Receive Date: 20100708
  Receipt Date: 20091026
  Transmission Date: 20110219
  Serious: Yes (Hospitalization)
  Sender: FDA-Public Use
  Company Number: 2009278249

PATIENT
  Age: 52 Year
  Sex: Female
  Weight: 48.5 kg

DRUGS (1)
  1. CHANTIX [Suspect]
     Indication: TOBACCO ABUSE
     Dosage: 1 MG, 2X/DAY
     Dates: start: 20080130, end: 20080312

REACTIONS (1)
  - SUICIDE ATTEMPT [None]
